FAERS Safety Report 19675671 (Version 1)
Quarter: 2021Q3

REPORT INFORMATION
  Report Type: Spontaneous
  Country: US (occurrence: US)
  Receive Date: 20210809
  Receipt Date: 20210809
  Transmission Date: 20211014
  Serious: Yes (Other)
  Sender: FDA-Public Use
  Company Number: US-GLENMARK PHARMACEUTICALS-2021GMK054610

PATIENT

DRUGS (1)
  1. ESTRADIOL VAGINAL INSERTS USP [Suspect]
     Active Substance: ESTRADIOL
     Indication: ATROPHIC VULVOVAGINITIS
     Dosage: UNK, TWICE A WEEK
     Route: 067

REACTIONS (6)
  - Vaginal haemorrhage [Unknown]
  - Injury associated with device [Unknown]
  - Device delivery system issue [Unknown]
  - Vulvovaginal injury [Unknown]
  - Device physical property issue [Unknown]
  - Incorrect dose administered by device [Unknown]
